FAERS Safety Report 5971314-9 (Version None)
Quarter: 2008Q4

REPORT INFORMATION
  Report Type: 
  Country: None (occurrence: None)
  Receive Date: 20081128
  Receipt Date: 20081119
  Transmission Date: 20090506
  Serious: Yes (Other)
  Sender: FDA-Public Use
  Company Number: US-PFIZER INC-2008099062

PATIENT
  Sex: Female
  Weight: 72.6 kg

DRUGS (6)
  1. CHANTIX [Suspect]
     Indication: SMOKING CESSATION THERAPY
     Dates: start: 20081001
  2. ADDERALL 10 [Concomitant]
  3. SINEMET [Concomitant]
  4. KLONOPIN [Concomitant]
  5. MORPHINE SULFATE [Concomitant]
  6. LUNESTA [Concomitant]

REACTIONS (2)
  - DRUG DOSE OMISSION [None]
  - PARANOIA [None]
